FAERS Safety Report 11697869 (Version 1)
Quarter: 2015Q4

REPORT INFORMATION
  Report Type: Spontaneous
  Country: US (occurrence: US)
  Receive Date: 20151104
  Receipt Date: 20151104
  Transmission Date: 20160304
  Serious: Yes (Hospitalization)
  Sender: FDA-Public Use
  Company Number: US-GLAXOSMITHKLINE-US2015GSK155187

PATIENT
  Age: 32 Year
  Sex: Female

DRUGS (1)
  1. NICOTINE. [Suspect]
     Active Substance: NICOTINE
     Indication: SMOKING CESSATION THERAPY
     Dosage: 21 MG, QD
     Route: 061

REACTIONS (8)
  - Anxiety [Unknown]
  - Insomnia [Unknown]
  - Toxicity to various agents [Unknown]
  - Abdominal pain [Unknown]
  - Palpitations [Unknown]
  - Diarrhoea [Unknown]
  - Electrocardiogram abnormal [Unknown]
  - Gastrointestinal sounds abnormal [Unknown]
